FAERS Safety Report 9029500 (Version 4)
Quarter: 2014Q1

REPORT INFORMATION
  Report Type: Report from Study
  Country: JP (occurrence: JP)
  Receive Date: 20130125
  Receipt Date: 20140128
  Transmission Date: 20141002
  Serious: Yes (Other)
  Sender: FDA-Public Use
  Company Number: JP-009507513-2012SP036747

PATIENT
  Age: 67 Year
  Sex: Female
  Weight: 55 kg

DRUGS (16)
  1. REBETOL CAPSULES 200MG [Suspect]
     Indication: CHRONIC HEPATITIS C
     Dosage: 200 MG, BID
     Route: 048
     Dates: start: 20110121, end: 20110403
  2. REBETOL CAPSULES 200MG [Suspect]
     Dosage: MORNING 200 MG; EVENING 400 MG
     Route: 048
     Dates: start: 20110404, end: 20110707
  3. REBETOL CAPSULES 200MG [Suspect]
     Dosage: 200 MG, BID
     Route: 048
     Dates: start: 20110708, end: 20110816
  4. FERON [Suspect]
     Indication: CHRONIC HEPATITIS C
     Dosage: 3 MILLION-BILLION IU, QD
     Route: 041
     Dates: start: 20110121, end: 20110121
  5. FERON [Suspect]
     Dosage: 4.5 MILLION-BILLION IU, QD
     Route: 041
     Dates: start: 20110124, end: 20110124
  6. FERON [Suspect]
     Dosage: 6 MILLION-BILLION IU, TIW
     Route: 041
     Dates: start: 20110126, end: 20110706
  7. FERON [Suspect]
     Dosage: 3 MILLION-BILLION IU, TIW
     Route: 041
     Dates: start: 20110708, end: 20110716
  8. FERON [Suspect]
     Dosage: 3 MILLION-BILLION IU, BIW
     Route: 041
     Dates: start: 20110718, end: 20110812
  9. REBETOL [Concomitant]
     Indication: CHRONIC HEPATITIS C
     Dosage: 200 MG, BID
     Route: 048
     Dates: start: 20110817, end: 20110930
  10. REBETOL [Concomitant]
     Dosage: 200 MG EVENING; 400 MG MORNING
     Route: 048
     Dates: start: 20111001, end: 20111020
  11. NEO-MINOPHAGEN C [Concomitant]
     Indication: CHRONIC HEPATITIS C
     Dosage: 100 ML, TIW
     Route: 051
     Dates: start: 20110422, end: 20110716
  12. NEO-MINOPHAGEN C [Concomitant]
     Dosage: 100 ML, 5 X PER WEEK
     Route: 051
     Dates: start: 20101224, end: 20110404
  13. NEO-MINOPHAGEN C [Concomitant]
     Dosage: 100 ML, BIW
     Route: 051
     Dates: start: 20110406, end: 20110420
  14. NEO-MINOPHAGEN C [Concomitant]
     Dosage: 100 ML, BIW
     Route: 051
     Dates: start: 20110718, end: 20110812
  15. URSO [Concomitant]
     Indication: CHRONIC HEPATITIS C
     Dosage: 600 MG, QD
     Route: 048
     Dates: start: 20110411
  16. DEPAS [Concomitant]
     Indication: INSOMNIA
     Dosage: 0.5 MG 1-7 DAYS ONCE WEEKLY
     Route: 048
     Dates: start: 20110202, end: 20120131

REACTIONS (15)
  - Neutrophil count decreased [Recovered/Resolved]
  - Pyrexia [Recovered/Resolved]
  - Insomnia [Recovered/Resolved]
  - Anxiety [Recovered/Resolved]
  - Decreased appetite [Recovering/Resolving]
  - Apathy [Recovered/Resolved]
  - Headache [Recovered/Resolved]
  - Myalgia [Recovering/Resolving]
  - Dysphonia [Recovered/Resolved]
  - Toothache [Recovered/Resolved]
  - Malaise [Recovered/Resolved]
  - Somnolence [Recovering/Resolving]
  - Rash [Recovered/Resolved]
  - Bronchitis [Recovered/Resolved]
  - Bronchitis [Recovered/Resolved]
